FAERS Safety Report 20860751 (Version 2)
Quarter: 2022Q2

REPORT INFORMATION
  Report Type: Spontaneous
  Country: GB (occurrence: GB)
  Receive Date: 20220523
  Receipt Date: 20220608
  Transmission Date: 20220721
  Serious: Yes (Life-Threatening, Hospitalization, Other)
  Sender: FDA-Public Use
  Company Number: GB-MYLANLABS-2022M1037135

PATIENT
  Sex: Female

DRUGS (1)
  1. CLOZARIL [Suspect]
     Active Substance: CLOZAPINE
     Indication: Schizophrenia
     Dosage: UNK
     Route: 048
     Dates: start: 20130122, end: 20220509

REACTIONS (11)
  - Myocarditis [Unknown]
  - Cardiomyopathy [Unknown]
  - Chronic obstructive pulmonary disease [Unknown]
  - General physical health deterioration [Unknown]
  - Lung disorder [Unknown]
  - Cardiac disorder [Unknown]
  - Metabolic syndrome [Unknown]
  - Dyspnoea [Unknown]
  - Heart rate increased [Unknown]
  - Chest pain [Unknown]
  - Palpitations [Unknown]
